FAERS Safety Report 8938165 (Version 3)
Quarter: 2014Q2

REPORT INFORMATION
  Report Type: Spontaneous
  Country: US (occurrence: US)
  Receive Date: 20121130
  Receipt Date: 20140512
  Transmission Date: 20141212
  Serious: No
  Sender: FDA-Public Use
  Company Number: US-ASTRAZENECA-2011SE13761

PATIENT
  Age: 64 Year
  Sex: Female
  Weight: 107 kg

DRUGS (5)
  1. SEROQUEL [Suspect]
     Indication: SLEEP DISORDER
     Route: 048
  2. SEROQUEL [Suspect]
     Indication: SLEEP DISORDER
     Route: 048
  3. SEROQUEL [Suspect]
     Indication: SLEEP DISORDER
     Route: 048
  4. THYROID REPLACEMENT [Concomitant]
  5. VITAMIN E [Concomitant]

REACTIONS (8)
  - Influenza [Unknown]
  - Insomnia [Unknown]
  - Fall [Unknown]
  - Pain in extremity [Unknown]
  - Musculoskeletal stiffness [Unknown]
  - Agitation [Unknown]
  - Dysphagia [Unknown]
  - Drug dose omission [Unknown]
